FAERS Safety Report 10143242 (Version 3)
Quarter: 2014Q2

REPORT INFORMATION
  Report Type: Spontaneous
  Country: JP (occurrence: JP)
  Receive Date: 20140430
  Receipt Date: 20140522
  Transmission Date: 20141212
  Serious: Yes (Other)
  Sender: FDA-Public Use
  Company Number: JP-PFIZER INC-2008093355

PATIENT
  Age: 76 Year
  Sex: Male
  Weight: 70 kg

DRUGS (5)
  1. VFEND [Suspect]
     Indication: BRONCHOPULMONARY ASPERGILLOSIS
     Dosage: 6 MG/KG, DAILY
     Route: 042
     Dates: start: 2008, end: 2008
  2. VFEND [Suspect]
     Dosage: 4 MG/KG, DAILY
     Route: 042
     Dates: start: 2008
  3. VFEND [Suspect]
     Indication: BRONCHOPULMONARY ASPERGILLOSIS
     Dosage: 400 MG, DAILY
     Route: 048
     Dates: start: 2008
  4. CLARITHROMYCIN [Suspect]
     Dosage: UNK
  5. MICAFUNGIN [Concomitant]
     Dosage: UNK

REACTIONS (3)
  - Hepatic function abnormal [Recovered/Resolved]
  - Blood creatine phosphokinase increased [Recovered/Resolved]
  - Erythema [Recovered/Resolved]
